FAERS Safety Report 4577099-5 (Version None)
Quarter: 2005Q1

REPORT INFORMATION
  Report Type: 
  Country: None (occurrence: None)
  Receive Date: 20050208
  Receipt Date: 20050125
  Transmission Date: 20050727
  Serious: Yes (Death, Hospitalization)
  Sender: FDA-Public Use
  Company Number: 2005S1000296

PATIENT
  Age: 39 Year
  Sex: Male
  Weight: 126 kg

DRUGS (3)
  1. CLOZAPINE [Suspect]
     Indication: SCHIZOPHRENIA
     Dosage: 550MG QD, ORAL
     Route: 048
     Dates: end: 20041230
  2. SERTRALINE [Concomitant]
  3. MODAFINIL [Concomitant]

REACTIONS (10)
  - BLOOD CULTURE POSITIVE [None]
  - BRAIN OEDEMA [None]
  - CRYPTOCOCCOSIS [None]
  - DISSEMINATED INTRAVASCULAR COAGULATION [None]
  - ENCEPHALITIS [None]
  - PANCREATITIS ACUTE [None]
  - RESPIRATORY TRACT INFECTION [None]
  - SEPTIC SHOCK [None]
  - STREPTOCOCCAL INFECTION [None]
  - VIRUS SEROLOGY TEST POSITIVE [None]
